FAERS Safety Report 4768570-1 (Version None)
Quarter: 2005Q3

REPORT INFORMATION
  Report Type: 
  Country: None (occurrence: None)
  Receive Date: 20050913
  Receipt Date: 20050831
  Transmission Date: 20060218
  Serious: Yes (Other)
  Sender: FDA-Public Use
  Company Number: 2005109174

PATIENT
  Age: 74 Year
  Sex: Male

DRUGS (4)
  1. VIAGRA [Suspect]
     Indication: ERECTILE DYSFUNCTION
     Dosage: 1/2 TO 1 (100 MG, AS NECESSARY) YEARS AGO
  2. CONCERTA [Concomitant]
  3. PROTONIX [Concomitant]
  4. REGLAN [Concomitant]

REACTIONS (1)
  - BLINDNESS UNILATERAL [None]
